FAERS Safety Report 8971287 (Version 3)
Quarter: 2013Q1

REPORT INFORMATION
  Report Type: Report from Study
  Country: JP (occurrence: JP)
  Receive Date: 20121217
  Receipt Date: 20130102
  Transmission Date: 20140127
  Serious: Yes (Death)
  Sender: FDA-Public Use
  Company Number: JP-PFIZER INC-2012313873

PATIENT
  Age: 73 Year
  Sex: Female
  Weight: 48.9 kg

DRUGS (21)
  1. XALKORI [Suspect]
     Indication: NON-SMALL CELL LUNG CANCER
     Dosage: 250 MG, 2X/DAY
     Route: 048
     Dates: start: 20120814, end: 20120823
  2. MARZULENE S [Concomitant]
     Dosage: 0.5 G, 3X/DAY
     Route: 048
     Dates: end: 20120821
  3. LOXONIN [Concomitant]
     Dosage: 60 MG, 3X/DAY
     Route: 048
     Dates: end: 20120821
  4. MUCOSTA [Concomitant]
     Dosage: 100 MG, 3X/DAY
     Route: 048
     Dates: end: 20120822
  5. MIYA-BM [Concomitant]
     Dosage: 20 MG, 3X/DAY
     Route: 048
     Dates: end: 20120822
  6. OMEPRAL [Concomitant]
     Dosage: 20 MG, 1X/DAY
     Route: 048
     Dates: end: 20120825
  7. OXYCONTIN [Concomitant]
     Dosage: 5 MG, 2X/DAY
     Route: 048
     Dates: end: 20120816
  8. NOVAMIN [Concomitant]
     Dosage: 5 MG, 3X/DAY
     Route: 048
     Dates: end: 20120825
  9. BROCIN-CODEINE [Concomitant]
     Dosage: 2 MG, 3X/DAY
     Route: 048
     Dates: start: 20120814, end: 20120816
  10. TWINPAL [Concomitant]
     Dosage: 500 ML, 1X/DAY
     Route: 041
     Dates: end: 20120825
  11. LACTEC [Concomitant]
     Dosage: 500 ML, 1X/DAY
     Route: 041
     Dates: end: 20120825
  12. BFLUID [Concomitant]
     Dosage: 500 ML, 1X/DAY
     Route: 041
     Dates: start: 20120817, end: 20120825
  13. SAXIZON [Concomitant]
     Dosage: 100 MG, 1X/DAY
     Route: 042
     Dates: start: 20120814, end: 20120814
  14. LASIX [Concomitant]
     Dosage: 20 MG, 1X/DAY
     Route: 042
     Dates: start: 20120814, end: 20120816
  15. LASIX [Concomitant]
     Dosage: 20 MG, 1X/DAY
     Route: 042
     Dates: start: 20120820, end: 20120822
  16. LASIX [Concomitant]
     Dosage: 20 MG, 4X/DAY
     Route: 042
     Dates: start: 20120823, end: 20120823
  17. LASIX [Concomitant]
     Dosage: 20 MG, 2X/DAY
     Route: 042
     Dates: start: 20120824, end: 20120825
  18. PRIMPERAN [Concomitant]
     Dosage: 10 MG, 1X/DAY
     Route: 042
     Dates: start: 20120815, end: 20120815
  19. PRIMPERAN [Concomitant]
     Dosage: 10 MG, 1X/DAY
     Route: 042
     Dates: start: 20120819, end: 20120819
  20. ZOMETA [Concomitant]
     Dosage: 4 MG, 1X/DAY
     Route: 041
     Dates: start: 20120816, end: 20120816
  21. UNASYN S [Concomitant]
     Dosage: 1.5 G, 4X/DAY
     Route: 041
     Dates: start: 20120820, end: 20120826

REACTIONS (2)
  - Disease progression [Fatal]
  - Non-small cell lung cancer [Fatal]
